FAERS Safety Report 8471757-8 (Version None)
Quarter: 2012Q2

REPORT INFORMATION
  Report Type: 
  Country: None (occurrence: None)
  Receive Date: 20120627
  Receipt Date: 20110822
  Transmission Date: 20120825
  Serious: Yes (Other)
  Sender: FDA-Public Use
  Company Number: RU-ROCHE-798240

PATIENT
  Sex: Female

DRUGS (3)
  1. ROFERON-A [Suspect]
     Indication: HEPATITIS C
     Route: 058
  2. RIBAVIRIN [Suspect]
     Indication: HEPATITIS C
     Route: 048
  3. INTERFERON ALFA-2B [Suspect]
     Indication: HEPATITIS C
     Route: 065

REACTIONS (8)
  - HAEMOGLOBIN DECREASED [None]
  - MONOCYTE COUNT INCREASED [None]
  - HAEMATOCRIT DECREASED [None]
  - RED BLOOD CELL COUNT DECREASED [None]
  - LEUKOPENIA [None]
  - NEUTROPHIL COUNT DECREASED [None]
  - RED BLOOD CELL SEDIMENTATION RATE INCREASED [None]
  - TONGUE DRY [None]
